FAERS Safety Report 6575427-2 (Version None)
Quarter: 2010Q1

REPORT INFORMATION
  Report Type: 
  Country: None (occurrence: None)
  Receive Date: 20100209
  Receipt Date: 20100201
  Transmission Date: 20100710
  Serious: Yes (Other)
  Sender: FDA-Public Use
  Company Number: US-JNJFOC-20100201988

PATIENT
  Sex: Female
  Weight: 59.42 kg

DRUGS (2)
  1. DURAGESIC-100 [Suspect]
     Indication: BACK PAIN
     Route: 062
  2. DURAGESIC-100 [Suspect]
     Route: 062

REACTIONS (8)
  - AMNESIA [None]
  - DEMENTIA [None]
  - DETOXIFICATION [None]
  - FORMICATION [None]
  - NEOPLASM MALIGNANT [None]
  - NERVOUS SYSTEM DISORDER [None]
  - PAIN [None]
  - PERIPHERAL SENSORY NEUROPATHY [None]
